FAERS Safety Report 17592533 (Version 1)
Quarter: 2020Q1

REPORT INFORMATION
  Report Type: Spontaneous
  Country: US (occurrence: US)
  Receive Date: 20200327
  Receipt Date: 20200327
  Transmission Date: 20200409
  Serious: No
  Sender: FDA-Public Use
  Company Number: US-JNJFOC-20200335360

PATIENT
  Age: 54 Year
  Sex: Male
  Weight: 92.62 kg

DRUGS (4)
  1. MELOXICAM. [Concomitant]
     Active Substance: MELOXICAM
     Indication: INFLAMMATION
  2. ZOLOFT [Concomitant]
     Active Substance: SERTRALINE HYDROCHLORIDE
     Indication: ANXIETY
     Route: 048
  3. TREMFYA [Suspect]
     Active Substance: GUSELKUMAB
     Indication: PSORIASIS
     Route: 058
     Dates: start: 20200222
  4. MELOXICAM. [Concomitant]
     Active Substance: MELOXICAM
     Indication: PAIN
     Dosage: AS NEEDED
     Route: 048

REACTIONS (4)
  - Product storage error [Unknown]
  - Musculoskeletal disorder [Unknown]
  - Anxiety [Unknown]
  - Product dose omission [Unknown]

NARRATIVE: CASE EVENT DATE: 20200318
